FAERS Safety Report 7741628-0 (Version None)
Quarter: 2011Q3

REPORT INFORMATION
  Report Type: 
  Country: None (occurrence: None)
  Receive Date: 20110911
  Receipt Date: 20110831
  Transmission Date: 20111222
  Serious: Yes (Death, Hospitalization)
  Sender: FDA-Public Use
  Company Number: US-CELGENEUS-163-21880-11080870

PATIENT
  Sex: Female

DRUGS (17)
  1. REVLIMID [Suspect]
     Dosage: 5 MILLIGRAM
     Route: 048
     Dates: start: 20110501, end: 20110101
  2. FENTANYL [Concomitant]
     Route: 065
  3. GABAPENTIN [Concomitant]
     Route: 065
  4. HYDROCODONE BITARTRATE [Concomitant]
     Route: 065
  5. COUMADIN [Concomitant]
     Route: 065
  6. REVLIMID [Suspect]
     Indication: MYELODYSPLASTIC SYNDROME
     Dosage: 10 MILLIGRAM
     Route: 048
     Dates: start: 20100707
  7. LOPERAMIDE HCL [Concomitant]
     Route: 065
  8. EPOGEN [Concomitant]
     Route: 065
  9. HEPARIN [Concomitant]
     Route: 040
  10. METOPROLOL SUCCINATE [Concomitant]
     Route: 065
  11. ESTREVA [Concomitant]
     Route: 065
  12. TRIAMTERENE [Concomitant]
     Route: 065
  13. REVLIMID [Suspect]
     Dosage: 10 MILLIGRAM
     Route: 048
     Dates: start: 20110601, end: 20110101
  14. PREDNISONE [Concomitant]
     Route: 065
  15. ARANESP [Concomitant]
     Route: 065
  16. LISINOPRIL [Concomitant]
     Route: 065
  17. HYDROCHLOROTHIAZIDE [Concomitant]
     Route: 065

REACTIONS (2)
  - CARDIAC FAILURE [None]
  - MYOCARDIAL INFARCTION [None]
